FAERS Safety Report 12781208 (Version 1)
Quarter: 2016Q3

REPORT INFORMATION
  Report Type: Spontaneous
  Country: US (occurrence: US)
  Receive Date: 20160926
  Receipt Date: 20160926
  Transmission Date: 20161109
  Serious: No
  Sender: FDA-Public Use
  Company Number: US-GLENMARK PHARMACEUTICALS INC, USA.-2015GMK018984

PATIENT

DRUGS (5)
  1. MAALOX ANTACID [Concomitant]
     Active Substance: ALUMINUM HYDROXIDE\DIMETHICONE\MAGNESIUM HYDROXIDE
     Indication: APHTHOUS ULCER
     Dosage: UNK
  2. MONTELUKAST [Suspect]
     Active Substance: MONTELUKAST SODIUM
     Indication: APHTHOUS ULCER
     Dosage: UNK
  3. AMLEXANOX [Concomitant]
     Active Substance: AMLEXANOX
     Indication: APHTHOUS ULCER
     Dosage: UNK
  4. LIDOCAINE. [Concomitant]
     Active Substance: LIDOCAINE
     Indication: APHTHOUS ULCER
     Dosage: UNK
  5. DIPHENHYDRAMINE. [Concomitant]
     Active Substance: DIPHENHYDRAMINE
     Indication: APHTHOUS ULCER
     Dosage: UNK

REACTIONS (1)
  - Off label use [Unknown]
